FAERS Safety Report 17446597 (Version 1)
Quarter: 2020Q1

REPORT INFORMATION
  Report Type: Spontaneous
  Country: DE (occurrence: DE)
  Receive Date: 20200221
  Receipt Date: 20200221
  Transmission Date: 20200409
  Serious: Yes (Other)
  Sender: FDA-Public Use
  Company Number: NVSC2020DE041920

PATIENT
  Sex: Female

DRUGS (1)
  1. RISPERIDONE. [Suspect]
     Active Substance: RISPERIDONE
     Indication: PRODUCT USED FOR UNKNOWN INDICATION
     Dosage: 6 MG, QD
     Route: 065

REACTIONS (7)
  - Sleep apnoea syndrome [Unknown]
  - Bladder disorder [Unknown]
  - Drug dependence [Unknown]
  - Mental disorder [Unknown]
  - Microsleep [Unknown]
  - Dizziness [Unknown]
  - Movement disorder [Unknown]
